FAERS Safety Report 9916881 (Version 1)
Quarter: 2014Q1

REPORT INFORMATION
  Report Type: Spontaneous
  Country: AT (occurrence: AT)
  Receive Date: 20140221
  Receipt Date: 20140221
  Transmission Date: 20141002
  Serious: Yes (Hospitalization)
  Sender: FDA-Public Use
  Company Number: AT-ELI_LILLY_AND_COMPANY-AT201402003896

PATIENT
  Age: 71 Year
  Sex: Female

DRUGS (6)
  1. DULOXETINE HYDROCHLORIDE [Suspect]
     Indication: PRODUCT USED FOR UNKNOWN INDICATION
     Dosage: UNK, UNKNOWN
     Route: 065
  2. LYRICA [Interacting]
     Indication: PRODUCT USED FOR UNKNOWN INDICATION
     Dosage: UNK, UNKNOWN
     Route: 065
  3. MIRTABENE [Interacting]
     Indication: PRODUCT USED FOR UNKNOWN INDICATION
     Dosage: UNK, UNKNOWN
     Route: 065
  4. ZOLDEM [Concomitant]
  5. XANOR [Concomitant]
  6. MUTAFLOR [Concomitant]

REACTIONS (8)
  - Drug interaction [Unknown]
  - Tremor [Recovered/Resolved]
  - Fall [Recovered/Resolved]
  - Urinary tract infection [Unknown]
  - C-reactive protein increased [Recovered/Resolved]
  - Diarrhoea [Unknown]
  - Blood cholesterol increased [Unknown]
  - Gamma-glutamyltransferase increased [Unknown]
